FAERS Safety Report 4318342-7 (Version None)
Quarter: 2004Q1

REPORT INFORMATION
  Report Type: 
  Country: None (occurrence: None)
  Receive Date: 20040315
  Receipt Date: 20031211
  Transmission Date: 20041129
  Serious: No
  Sender: FDA-Public Use
  Company Number: 2003190272US

PATIENT
  Age: 42 Year
  Sex: Female

DRUGS (1)
  1. BEXTRA [Suspect]
     Indication: ARTHRITIS
     Dosage: 10 MG,
     Dates: start: 20030101

REACTIONS (2)
  - EPISTAXIS [None]
  - INCREASED UPPER AIRWAY SECRETION [None]
